FAERS Safety Report 7064651-0 (Version None)
Quarter: 2010Q4

REPORT INFORMATION
  Report Type: 
  Country: None (occurrence: None)
  Receive Date: 20101025
  Receipt Date: 20101025
  Transmission Date: 20110411
  Serious: Yes (Disabling)
  Sender: FDA-Public Use
  Company Number: None

PATIENT
  Age: 41 Year
  Sex: Female
  Weight: 57.6068 kg

DRUGS (7)
  1. REBIF [Suspect]
     Dosage: 44 MCG/0.5 ML   3 TIMES / WEEK SC
     Route: 058
     Dates: start: 20090210, end: 20100707
  2. CYMBALTA [Concomitant]
  3. METHADONE HCL [Concomitant]
  4. MOTRIN [Concomitant]
  5. KLONOPIN [Concomitant]
  6. NEURONTIN [Concomitant]
  7. SULFASALAZINE [Concomitant]

REACTIONS (13)
  - CONTUSION [None]
  - DYSPNOEA [None]
  - ERYTHEMA [None]
  - HEART RATE INCREASED [None]
  - HEART RATE IRREGULAR [None]
  - HYPOAESTHESIA [None]
  - JOINT SWELLING [None]
  - OEDEMA PERIPHERAL [None]
  - PALLOR [None]
  - PYREXIA [None]
  - RASH [None]
  - SPEECH DISORDER [None]
  - VERTIGO [None]
